FAERS Safety Report 21938793 (Version 1)
Quarter: 2023Q1

REPORT INFORMATION
  Report Type: Spontaneous
  Country: NL (occurrence: NL)
  Receive Date: 20230201
  Receipt Date: 20230201
  Transmission Date: 20230418
  Serious: Yes (Other)
  Sender: FDA-Public Use
  Company Number: NL-EXELIXIS-CABO-22050671

PATIENT
  Age: 44 Year
  Sex: Male
  Weight: 113 kg

DRUGS (18)
  1. CABOMETYX [Suspect]
     Active Substance: CABOZANTINIB S-MALATE
     Indication: Thyroid cancer metastatic
     Dosage: 60 MG, QD
     Route: 048
     Dates: start: 20220308
  2. CABOMETYX [Suspect]
     Active Substance: CABOZANTINIB S-MALATE
     Dosage: 40 MG, QD
     Route: 048
  3. CABOMETYX [Suspect]
     Active Substance: CABOZANTINIB S-MALATE
     Dosage: 60 MG
     Route: 048
  4. CABOMETYX [Suspect]
     Active Substance: CABOZANTINIB S-MALATE
     Dosage: 60 MG
     Route: 048
     Dates: end: 20221210
  5. CABOMETYX [Suspect]
     Active Substance: CABOZANTINIB S-MALATE
     Dosage: 60 MG
     Route: 048
     Dates: start: 20230117
  6. FLUTICASONE [Concomitant]
     Active Substance: FLUTICASONE
     Indication: Nasal obstruction
     Dosage: UNK
  7. LEVOTHYROXINE [Concomitant]
     Active Substance: LEVOTHYROXINE
     Indication: Hypothyroidism
     Dosage: UNK
  8. CODEINE [Concomitant]
     Active Substance: CODEINE
     Indication: Cough
     Dosage: UNK
  9. FENTANYL [Concomitant]
     Active Substance: FENTANYL
     Indication: Pain
     Dosage: UNK
  10. TRANEXAMINEZUUR [Concomitant]
     Indication: Pulmonary haemorrhage
     Dosage: UNK
  11. ALGELDRATE/mg HYDROXIDE [Concomitant]
     Indication: Dyspepsia
     Dosage: UNK
  12. PANTOPRAZOLE [Concomitant]
     Active Substance: PANTOPRAZOLE
     Indication: Dyspepsia
     Dosage: UNK
  13. UREUM [Concomitant]
     Dosage: UNK
  14. CHOLESTYRAMINE [Concomitant]
     Active Substance: CHOLESTYRAMINE
     Dosage: UNK
  15. OXYCONTIN [Concomitant]
     Active Substance: OXYCODONE HYDROCHLORIDE
     Dosage: UNK
  16. ACETAMINOPHEN [Concomitant]
     Active Substance: ACETAMINOPHEN
     Dosage: UNK
  17. QUETIAPINE [Concomitant]
     Active Substance: QUETIAPINE
     Dosage: UNK
  18. TEMAZEPAM [Concomitant]
     Active Substance: TEMAZEPAM
     Dosage: UNK

REACTIONS (5)
  - Anal fistula [Recovering/Resolving]
  - Diarrhoea [Not Recovered/Not Resolved]
  - Pulmonary mass [Unknown]
  - Haemoptysis [Unknown]
  - Off label use [Unknown]

NARRATIVE: CASE EVENT DATE: 20220301
